FAERS Safety Report 9840769 (Version 1)
Quarter: 2013Q4

REPORT INFORMATION
  Report Type: Spontaneous
  Country: US (occurrence: None)
  Receive Date: 20131211
  Receipt Date: 20131211
  Transmission Date: 20140711
  Serious: Yes (Other)
  Sender: FDA-Public Use
  Company Number: ALL1-2012-06609

PATIENT
  Age: 27 Year
  Sex: Male
  Weight: 66.2 kg

DRUGS (1)
  1. VYVANSE [Suspect]
     Indication: PRODUCT USED FOR UNKNOWN INDICATION
     Route: 048

REACTIONS (5)
  - Depression [None]
  - Malaise [None]
  - Drug prescribing error [None]
  - Drug effect decreased [None]
  - Overdose [None]
